FAERS Safety Report 8145701-7 (Version None)
Quarter: 2012Q1

REPORT INFORMATION
  Report Type: 
  Country: None (occurrence: None)
  Receive Date: 20120217
  Receipt Date: 20120210
  Transmission Date: 20120608
  Serious: Yes (Other)
  Sender: FDA-Public Use
  Company Number: US-US-EMD SERONO, INC.-7112998

PATIENT
  Sex: Male

DRUGS (1)
  1. REBIF [Suspect]
     Indication: PROGRESSIVE MULTIPLE SCLEROSIS
     Route: 058
     Dates: start: 20071203

REACTIONS (5)
  - HYPOAESTHESIA [None]
  - SINUS POLYP [None]
  - MUSCULAR WEAKNESS [None]
  - VISUAL FIELD DEFECT [None]
  - INJECTION SITE ERYTHEMA [None]
